FAERS Safety Report 4873340-X (Version None)
Quarter: 2006Q1

REPORT INFORMATION
  Report Type: 
  Country: None (occurrence: None)
  Receive Date: 20060105
  Receipt Date: 20051230
  Transmission Date: 20060701
  Serious: Yes (Other)
  Sender: FDA-Public Use
  Company Number: US-JNJFOC-20060100533

PATIENT
  Sex: Female
  Weight: 55.79 kg

DRUGS (4)
  1. TOPAMAX [Suspect]
     Indication: MIGRAINE PROPHYLAXIS
     Route: 048
  2. TOPAMAX [Suspect]
     Route: 048
  3. XANAX [Concomitant]
     Indication: ANXIETY
     Dosage: 1.5 - 2 TABS DAILY
  4. ZOMIG [Concomitant]
     Indication: MIGRAINE

REACTIONS (10)
  - AGITATION [None]
  - AMNESIA [None]
  - BREAST PAIN [None]
  - DEPRESSION [None]
  - DISTURBANCE IN ATTENTION [None]
  - EYE MOVEMENT DISORDER [None]
  - GINGIVITIS [None]
  - HEPATIC CYST [None]
  - MOOD SWINGS [None]
  - WEIGHT DECREASED [None]
